FAERS Safety Report 18472887 (Version 1)
Quarter: 2020Q4

REPORT INFORMATION
  Report Type: Spontaneous
  Country: US (occurrence: US)
  Receive Date: 20201105
  Receipt Date: 20201105
  Transmission Date: 20210114
  Serious: Yes (Other)
  Sender: FDA-Public Use
  Company Number: None

PATIENT
  Age: 61 Year
  Sex: Female
  Weight: 90 kg

DRUGS (5)
  1. MULTI VITAMIN [Concomitant]
     Active Substance: VITAMINS
  2. LEVOTHYROXIN [Concomitant]
     Active Substance: LEVOTHYROXINE
  3. L-LYSINE [Concomitant]
     Active Substance: LYSINE
  4. DIPYRIDAMOLE 75MG [Suspect]
     Active Substance: DIPYRIDAMOLE
     Indication: MENIERE^S DISEASE
     Dates: start: 20200915, end: 20200915
  5. METOPROLOL. [Concomitant]
     Active Substance: METOPROLOL

REACTIONS (2)
  - Chest discomfort [None]
  - Headache [None]

NARRATIVE: CASE EVENT DATE: 20200915
